FAERS Safety Report 8335398-5 (Version None)
Quarter: 2012Q2

REPORT INFORMATION
  Report Type: 
  Country: None (occurrence: None)
  Receive Date: 20120503
  Receipt Date: 20120425
  Transmission Date: 20120825
  Serious: Yes (Hospitalization)
  Sender: FDA-Public Use
  Company Number: JP-MERCK-1204USA03079

PATIENT

DRUGS (3)
  1. METFORMIN HCL [Concomitant]
     Indication: HYPERGLYCAEMIA
     Dosage: DAILY DOSAGE UNKNOWN
     Route: 048
  2. JANUVIA [Suspect]
     Indication: HYPERGLYCAEMIA
     Dosage: DAILY DOSAGE UNKNOWN
     Route: 048
     Dates: start: 20110401, end: 20120401
  3. GLIMEPIRIDE [Concomitant]
     Indication: HYPERGLYCAEMIA
     Dosage: DAILY DOSAGE UNKNOWN
     Route: 048

REACTIONS (2)
  - ADVERSE EVENT [None]
  - IRON DEFICIENCY ANAEMIA [None]
